FAERS Safety Report 6940008-5 (Version None)
Quarter: 2010Q3

REPORT INFORMATION
  Report Type: 
  Country: None (occurrence: None)
  Receive Date: 20100825
  Receipt Date: 20100810
  Transmission Date: 20110219
  Serious: No
  Sender: FDA-Public Use
  Company Number: US-PFIZER INC-2010084600

PATIENT
  Sex: Female

DRUGS (1)
  1. CLEOCIN [Suspect]
     Indication: INFECTION
     Dosage: 225 MG, (15 ML OF 75MG/5ML),  3X/DAY
     Route: 048
     Dates: start: 20100601, end: 20100712

REACTIONS (2)
  - DYSGEUSIA [None]
  - PRODUCT ODOUR ABNORMAL [None]
